FAERS Safety Report 8498730-8 (Version None)
Quarter: 2012Q3

REPORT INFORMATION
  Report Type: 
  Country: None (occurrence: None)
  Receive Date: 20120709
  Receipt Date: 20120628
  Transmission Date: 20120928
  Serious: No
  Sender: FDA-Public Use
  Company Number: US-AMGEN-USASP2012040163

PATIENT
  Age: 57 Year
  Sex: Male

DRUGS (1)
  1. ENBREL [Suspect]
     Indication: PSORIASIS
     Dosage: 50 MG, QWK
     Dates: start: 20120601, end: 20120622

REACTIONS (8)
  - MOVEMENT DISORDER [None]
  - INJECTION SITE ERYTHEMA [None]
  - FATIGUE [None]
  - ERYTHEMA [None]
  - PAIN [None]
  - OEDEMA PERIPHERAL [None]
  - BURNING SENSATION [None]
  - INJECTION SITE PRURITUS [None]
